FAERS Safety Report 24991192 (Version 5)
Quarter: 2025Q4

REPORT INFORMATION
  Report Type: Report from Study
  Country: US (occurrence: US)
  Receive Date: 20250220
  Receipt Date: 20251231
  Transmission Date: 20260118
  Serious: Yes (Other)
  Sender: PFIZER
  Company Number: US-PFIZER INC-2021388941

PATIENT
  Age: 74 Year
  Sex: Female

DRUGS (5)
  1. BRAFTOVI [Suspect]
     Active Substance: ENCORAFENIB
     Indication: Malignant melanoma
     Dosage: 150 MG, 1X/DAY (DAILY, AT NIGHT BEFORE BED)
     Route: 048
  2. BRAFTOVI [Suspect]
     Active Substance: ENCORAFENIB
     Dosage: 150 MG, DAILY (TAKE 2 CAPSULES DAILY)
     Route: 048
  3. BRAFTOVI [Suspect]
     Active Substance: ENCORAFENIB
     Dosage: 300 MG, DAILY
     Route: 048
  4. BRAFTOVI [Suspect]
     Active Substance: ENCORAFENIB
     Dosage: 150 MG, DAILY (TAKE 2 CAPSULES DAILY)
     Route: 048
     Dates: start: 2024
  5. BRAFTOVI [Suspect]
     Active Substance: ENCORAFENIB
     Dosage: 150 MG, DAILY (TAKE 2 CAPSULES DAILY)
     Route: 048
     Dates: start: 202501

REACTIONS (2)
  - Recurrent cancer [Unknown]
  - Off label use [Unknown]
